FAERS Safety Report 14336744 (Version 2)
Quarter: 2020Q1

REPORT INFORMATION
  Report Type: Spontaneous
  Country: US (occurrence: US)
  Receive Date: 20171229
  Receipt Date: 20200228
  Transmission Date: 20200409
  Serious: Yes (Other)
  Sender: FDA-Public Use
  Company Number: US-009507513-1712USA008013

PATIENT
  Age: 23 Year
  Sex: Female
  Weight: 54.88 kg

DRUGS (2)
  1. ADDERALL [Concomitant]
     Active Substance: AMPHETAMINE ASPARTATE\AMPHETAMINE SULFATE\DEXTROAMPHETAMINE SACCHARATE\DEXTROAMPHETAMINE SULFATE
     Dosage: UNK
  2. NEXPLANON [Suspect]
     Active Substance: ETONOGESTREL
     Indication: CONTRACEPTION
     Dosage: 1 IMPLANT SUBDERMALLY EVERY 3 YEARS
     Route: 059
     Dates: start: 20170322, end: 20170327

REACTIONS (5)
  - Malaise [Unknown]
  - Implant site cellulitis [Not Recovered/Not Resolved]
  - Hypersensitivity [Unknown]
  - Dermatitis allergic [Unknown]
  - Drug dependence [Unknown]

NARRATIVE: CASE EVENT DATE: 20170327
